FAERS Safety Report 14378582 (Version 1)
Quarter: 2018Q1

REPORT INFORMATION
  Report Type: Report from Study
  Country: None (occurrence: GR)
  Receive Date: 20180112
  Receipt Date: 20180112
  Transmission Date: 20180509
  Serious: Yes (Hospitalization)
  Sender: FDA-Public Use
  Company Number: GR-ABBVIE-18K-066-2219724-00

PATIENT
  Sex: Male
  Weight: 80 kg

DRUGS (5)
  1. DUODOPA [Suspect]
     Active Substance: CARBIDOPA\LEVODOPA
     Indication: PARKINSON^S DISEASE
     Dosage: MORNING DOSE:9.0ML; CONTINUOUS RATE: 4.5ML/H; EXTRA DOSE:2.0ML
     Route: 050
     Dates: start: 201111
  2. CIPRALEX [Concomitant]
     Active Substance: ESCITALOPRAM OXALATE
     Indication: PRODUCT USED FOR UNKNOWN INDICATION
     Route: 048
  3. BICALUT [Concomitant]
     Indication: PROSTATE CANCER
     Route: 048
  4. EXELON [Concomitant]
     Active Substance: RIVASTIGMINE TARTRATE
     Indication: AMNESIA
     Route: 062
  5. LEPONEX [Concomitant]
     Active Substance: CLOZAPINE
     Indication: INSOMNIA
     Route: 048

REACTIONS (3)
  - Urosepsis [Not Recovered/Not Resolved]
  - Renal impairment [Not Recovered/Not Resolved]
  - Multiple organ dysfunction syndrome [Not Recovered/Not Resolved]
